FAERS Safety Report 13628554 (Version 1)
Quarter: 2017Q2

REPORT INFORMATION
  Report Type: Spontaneous
  Country: FR (occurrence: FR)
  Receive Date: 20170608
  Receipt Date: 20170608
  Transmission Date: 20170830
  Serious: Yes (Life-Threatening, Hospitalization)
  Sender: FDA-Public Use
  Company Number: FR-PFIZER INC-2017248634

PATIENT
  Age: 24 Year
  Sex: Female

DRUGS (8)
  1. ANDROCUR [Suspect]
     Active Substance: CYPROTERONE ACETATE
     Indication: HIRSUTISM
     Dosage: 50 MG
     Route: 048
  2. LYRICA [Suspect]
     Active Substance: PREGABALIN
     Dosage: DOSE INCREASED
     Route: 048
     Dates: start: 201704
  3. IXPRIM [Suspect]
     Active Substance: ACETAMINOPHEN\TRAMADOL HYDROCHLORIDE
     Indication: BACK PAIN
     Dosage: UNK, AS NEEDED
     Route: 048
  4. PARACETAMOL [Suspect]
     Active Substance: ACETAMINOPHEN
     Indication: PAIN
     Route: 048
  5. PROVAMES [Suspect]
     Active Substance: ESTRADIOL
     Dosage: 2 MG
     Route: 048
  6. MOPRAL [Suspect]
     Active Substance: OMEPRAZOLE SODIUM
     Indication: ABDOMINAL PAIN UPPER
     Dosage: UNK
     Route: 048
     Dates: start: 201704
  7. BIPROFENID LP [Suspect]
     Active Substance: KETOPROFEN
     Indication: MIGRAINE
     Dosage: 100 MG ONCE A DAY AS NEEDED
     Route: 048
  8. LYRICA [Suspect]
     Active Substance: PREGABALIN
     Indication: PAIN
     Dosage: 25 MG, THREE TIMES DAILY AS NEEDED
     Route: 048
     Dates: start: 2017

REACTIONS (1)
  - Hepatitis fulminant [Recovered/Resolved with Sequelae]

NARRATIVE: CASE EVENT DATE: 201704
